FAERS Safety Report 4584152-9 (Version None)
Quarter: 2005Q1

REPORT INFORMATION
  Report Type: 
  Country: None (occurrence: None)
  Receive Date: 20050216
  Receipt Date: 20050113
  Transmission Date: 20050727
  Serious: Yes (Other)
  Sender: FDA-Public Use
  Company Number: PHEH2005US00854

PATIENT
  Age: 70 Year
  Sex: Female

DRUGS (2)
  1. FEMARA [Concomitant]
     Dosage: 2.5 MG, QD
     Dates: start: 20030401
  2. ZOMETA [Suspect]
     Indication: BREAST CANCER METASTATIC
     Dosage: 4 MG, QW4
     Route: 042
     Dates: start: 20040101, end: 20041130

REACTIONS (8)
  - ANAEMIA [None]
  - BONE DISORDER [None]
  - CEREBROVASCULAR ACCIDENT [None]
  - IMPAIRED HEALING [None]
  - INFECTION [None]
  - OSTEONECROSIS [None]
  - TOOTH EXTRACTION [None]
  - WOUND DEBRIDEMENT [None]
